FAERS Safety Report 25024832 (Version 1)
Quarter: 2025Q1

REPORT INFORMATION
  Report Type: Spontaneous
  Country: US (occurrence: US)
  Receive Date: 20250228
  Receipt Date: 20250228
  Transmission Date: 20250408
  Serious: No
  Sender: ELI LILLY AND COMPANY
  Company Number: US-ELI_LILLY_AND_COMPANY-US202502021959

PATIENT
  Age: 53 Year
  Sex: Female

DRUGS (4)
  1. ZEPBOUND [Suspect]
     Active Substance: TIRZEPATIDE
     Indication: Blood pressure abnormal
     Dosage: 2.5 MG, WEEKLY (1/W)
     Route: 058
     Dates: start: 20250212
  2. ZEPBOUND [Suspect]
     Active Substance: TIRZEPATIDE
     Indication: Blood pressure abnormal
     Dosage: 2.5 MG, WEEKLY (1/W)
     Route: 058
     Dates: start: 20250212
  3. ZEPBOUND [Suspect]
     Active Substance: TIRZEPATIDE
     Indication: Blood pressure abnormal
     Dosage: 2.5 MG, WEEKLY (1/W)
     Route: 058
     Dates: start: 20250212
  4. ZEPBOUND [Suspect]
     Active Substance: TIRZEPATIDE
     Indication: Blood pressure abnormal
     Dosage: 2.5 MG, WEEKLY (1/W)
     Route: 058
     Dates: start: 20250212

REACTIONS (4)
  - Off label use [Unknown]
  - Product dose omission issue [Unknown]
  - Ear infection [Not Recovered/Not Resolved]
  - Sinusitis [Not Recovered/Not Resolved]

NARRATIVE: CASE EVENT DATE: 20250212
